FAERS Safety Report 4268178-0 (Version None)
Quarter: 2004Q1

REPORT INFORMATION
  Report Type: 
  Country: None (occurrence: None)
  Receive Date: 20040109
  Receipt Date: 20030806
  Transmission Date: 20041129
  Serious: Yes (Hospitalization, Disabling, Other)
  Sender: FDA-Public Use
  Company Number: WAES 0308USA00751

PATIENT
  Age: 50 Year
  Sex: Male
  Weight: 77 kg

DRUGS (8)
  1. VICODIN ES [Concomitant]
     Route: 048
     Dates: end: 20010723
  2. PERCOCET [Concomitant]
     Route: 048
  3. CEFTIN [Concomitant]
     Route: 048
  4. CLARITIN-D [Suspect]
     Route: 048
     Dates: end: 20010723
  5. VIOXX [Suspect]
     Route: 048
     Dates: start: 20010410, end: 20010723
  6. ZOLOFT [Concomitant]
     Route: 048
  7. ZOLOFT [Concomitant]
     Route: 048
     Dates: end: 20010701
  8. AMBIEN [Concomitant]
     Route: 048
     Dates: end: 20010701

REACTIONS (24)
  - ACUTE MYOCARDIAL INFARCTION [None]
  - ANGINA PECTORIS [None]
  - AORTIC VALVE INCOMPETENCE [None]
  - AORTIC VALVE SCLEROSIS [None]
  - BLOOD BILIRUBIN INCREASED [None]
  - BLOOD GLUCOSE INCREASED [None]
  - BLOOD PRESSURE INCREASED [None]
  - CARPAL TUNNEL SYNDROME [None]
  - ELECTROCARDIOGRAM ST SEGMENT DEPRESSION [None]
  - ELECTROCARDIOGRAM ST SEGMENT ELEVATION [None]
  - EMOTIONAL DISTRESS [None]
  - FATIGUE [None]
  - HYPERTENSION [None]
  - HYPERTENSIVE HEART DISEASE [None]
  - INCISION SITE COMPLICATION [None]
  - INSOMNIA [None]
  - ISCHAEMIA [None]
  - MITRAL VALVE INCOMPETENCE [None]
  - MITRAL VALVE PROLAPSE [None]
  - SLEEP APNOEA SYNDROME [None]
  - THROMBOSIS [None]
  - TRIGGER FINGER [None]
  - VENTRICULAR EXTRASYSTOLES [None]
  - VENTRICULAR HYPOKINESIA [None]
